FAERS Safety Report 23198600 (Version 1)
Quarter: 2023Q4

REPORT INFORMATION
  Report Type: Spontaneous
  Country: NO (occurrence: NO)
  Receive Date: 20231117
  Receipt Date: 20231117
  Transmission Date: 20240110
  Serious: Yes (Death)
  Sender: FDA-Public Use
  Company Number: None

PATIENT
  Age: 34 Year
  Sex: Female

DRUGS (2)
  1. LEUCOVORIN CALCIUM [Suspect]
     Active Substance: LEUCOVORIN CALCIUM
     Indication: Chemotherapeutic drug level above therapeutic
     Dosage: DOSE UNKNOWN
     Dates: start: 202305
  2. METHOTREXATE [Suspect]
     Active Substance: METHOTREXATE
     Indication: Acute lymphocytic leukaemia
     Dosage: DOSE ACCORDING TO NOPHO 08 PROTOCOL
     Dates: start: 202305

REACTIONS (3)
  - Hyperphosphataemia [Fatal]
  - Acute kidney injury [Fatal]
  - Hypercalcaemia [Fatal]

NARRATIVE: CASE EVENT DATE: 20230501
